FAERS Safety Report 4890692-5 (Version None)
Quarter: 2006Q1

REPORT INFORMATION
  Report Type: 
  Country: None (occurrence: None)
  Receive Date: 20060125
  Receipt Date: 20060119
  Transmission Date: 20060701
  Serious: Yes (Hospitalization)
  Sender: FDA-Public Use
  Company Number: JP-BOEHRINGER INGELHEIM PHARMACEUTICALS, INC.-2006-BP-00824NB

PATIENT
  Age: 62 Year
  Sex: Female

DRUGS (2)
  1. MICARDIS [Suspect]
     Indication: HYPERTENSION
     Route: 048
     Dates: start: 20060113, end: 20060118
  2. PANALDINE [Concomitant]
     Route: 048

REACTIONS (1)
  - HYPOGLYCAEMIA [None]
